FAERS Safety Report 8303000-4 (Version None)
Quarter: 2012Q2

REPORT INFORMATION
  Report Type: 
  Country: None (occurrence: None)
  Receive Date: 20120420
  Receipt Date: 20120412
  Transmission Date: 20120825
  Serious: Yes (Other)
  Sender: FDA-Public Use
  Company Number: US-AMGEN-USASP2011042886

PATIENT
  Sex: Male

DRUGS (2)
  1. ARANESP [Suspect]
     Indication: RENAL FAILURE CHRONIC
     Dosage: 200 MUG, Q2WK
     Dates: start: 20100520, end: 20110721
  2. PROCRIT [Concomitant]
     Indication: RENAL FAILURE CHRONIC
     Dosage: UNK UNK, Q2MO
     Dates: start: 20110818

REACTIONS (2)
  - THERAPEUTIC RESPONSE DECREASED [None]
  - MYELODYSPLASTIC SYNDROME [None]
